FAERS Safety Report 7679369-0 (Version None)
Quarter: 2011Q3

REPORT INFORMATION
  Report Type: 
  Country: None (occurrence: None)
  Receive Date: 20110808
  Receipt Date: 20110726
  Transmission Date: 20111222
  Serious: Yes (Hospitalization, Other)
  Sender: FDA-Public Use
  Company Number: 2010SP015904

PATIENT
  Age: 25 Year
  Sex: Female
  Weight: 45.3597 kg

DRUGS (8)
  1. NUVARING [Suspect]
     Indication: CONTRACEPTION
     Dates: start: 20050101, end: 20070301
  2. TYLENOL-500 [Concomitant]
  3. NAPROXEN [Concomitant]
  4. SUMATRIPTAN SUCCINATE [Concomitant]
  5. ASPIRIN [Suspect]
     Indication: CEREBROVASCULAR ACCIDENT
  6. CLOPIDOGREL [Suspect]
     Indication: THROMBOSIS
     Dates: start: 20070301
  7. ENOXAPARIN [Suspect]
     Indication: THROMBOSIS
     Dates: start: 20070301
  8. ADVIL LIQUI-GELS [Concomitant]

REACTIONS (38)
  - THROMBOSIS [None]
  - CEREBELLAR INFARCTION [None]
  - VULVOVAGINAL PAIN [None]
  - MENORRHAGIA [None]
  - CLUSTER HEADACHE [None]
  - EMBOLIC CEREBRAL INFARCTION [None]
  - IVTH NERVE PARALYSIS [None]
  - PYREXIA [None]
  - VAGINAL DISCHARGE [None]
  - VENTRICULAR SEPTAL DEFECT [None]
  - MIGRAINE [None]
  - UTERINE HAEMORRHAGE [None]
  - PARAESTHESIA [None]
  - HYPERTENSION [None]
  - ATRIAL SEPTAL DEFECT [None]
  - ANXIETY [None]
  - URINARY TRACT INFECTION [None]
  - DEVICE OCCLUSION [None]
  - VENTRICULAR EXTRASYSTOLES [None]
  - VITH NERVE PARALYSIS [None]
  - CEREBRAL ISCHAEMIA [None]
  - CEREBROVASCULAR ACCIDENT [None]
  - CRANIAL NERVE DISORDER [None]
  - HAEMORRHAGIC ANAEMIA [None]
  - BRAIN STEM INFARCTION [None]
  - COGNITIVE DISORDER [None]
  - SCOLIOSIS [None]
  - ABDOMINAL DISTENSION [None]
  - RETROPERITONEAL HAEMORRHAGE [None]
  - HYPOAESTHESIA [None]
  - SINUS ARRHYTHMIA [None]
  - IIIRD NERVE PARALYSIS [None]
  - POST PROCEDURAL COMPLICATION [None]
  - CONTUSION [None]
  - SCRATCH [None]
  - VENTRICULAR TACHYCARDIA [None]
  - CERVICAL DYSPLASIA [None]
  - HYPERSENSITIVITY [None]
